FAERS Safety Report 25114859 (Version 1)
Quarter: 2025Q1

REPORT INFORMATION
  Report Type: Spontaneous
  Country: CN (occurrence: CN)
  Receive Date: 20250324
  Receipt Date: 20250324
  Transmission Date: 20250408
  Serious: Yes (Hospitalization)
  Sender: IPSEN BIOPHARMACEUTICALS, INC.
  Company Number: None

PATIENT
  Age: 62 Year
  Sex: Male
  Weight: 61 kg

DRUGS (8)
  1. IRINOTECAN HYDROCHLORIDE [Suspect]
     Active Substance: IRINOTECAN HYDROCHLORIDE
     Indication: Pancreatic carcinoma
     Dosage: 86 MG, QD, D1
     Route: 042
     Dates: start: 20250204, end: 20250204
  2. LEUCOVORIN CALCIUM [Suspect]
     Active Substance: LEUCOVORIN CALCIUM
     Indication: Pancreatic carcinoma
     Dosage: 0.35 G, QD, D1
     Route: 042
     Dates: start: 20250204, end: 20250204
  3. FLUOROURACIL [Suspect]
     Active Substance: FLUOROURACIL
     Indication: Pancreatic carcinoma
     Dosage: 3 G, QD, D1
     Route: 065
     Dates: start: 20250204, end: 20250204
  4. OXALIPLATIN [Suspect]
     Active Substance: OXALIPLATIN
     Indication: Pancreatic carcinoma
     Dosage: 100 MG, QD, D1
     Route: 042
     Dates: start: 20250204, end: 20250204
  5. SODIUM CHLORIDE [Concomitant]
     Active Substance: SODIUM CHLORIDE
     Indication: Medication dilution
     Dosage: 250 ML, QD, WITH IRINOTECAN HYDROCHLORIDE, D1
     Route: 042
     Dates: start: 20250204, end: 20250204
  6. SODIUM CHLORIDE [Concomitant]
     Active Substance: SODIUM CHLORIDE
     Dosage: 250 ML, QD, WITH OXALIPLATIN, D1
     Route: 042
     Dates: start: 20250204, end: 20250204
  7. SODIUM CHLORIDE [Concomitant]
     Active Substance: SODIUM CHLORIDE
     Dosage: 150 ML, QD WITH FLUOROURACIL, D1
     Route: 042
     Dates: start: 20250204, end: 20250204
  8. DEXTROSE [Concomitant]
     Active Substance: DEXTROSE MONOHYDRATE
     Indication: Medication dilution
     Dosage: 500 ML, QD, WITH CALCIUM FOLINATE, D1
     Route: 042
     Dates: start: 20250204, end: 20250204

REACTIONS (5)
  - Thrombocytopenia [Recovering/Resolving]
  - Leukopenia [Recovering/Resolving]
  - Myelosuppression [Recovering/Resolving]
  - Haemoglobin abnormal [Recovering/Resolving]
  - Product use issue [Recovered/Resolved]

NARRATIVE: CASE EVENT DATE: 20250204
